FAERS Safety Report 14685257 (Version 11)
Quarter: 2018Q4

REPORT INFORMATION
  Report Type: Spontaneous
  Country: DE (occurrence: DE)
  Receive Date: 20180327
  Receipt Date: 20181225
  Transmission Date: 20190204
  Serious: Yes (Other)
  Sender: FDA-Public Use
  Company Number: DE-009507513-1803DEU009443

PATIENT
  Age: 75 Year
  Sex: Male

DRUGS (3)
  1. SOFOSBUVIR [Suspect]
     Active Substance: SOFOSBUVIR
     Indication: HEPATITIS C
     Dosage: 400 MG, UNK
     Dates: start: 201510
  2. RIBAVIRIN. [Suspect]
     Active Substance: RIBAVIRIN
     Indication: HEPATITIS C
     Dosage: 200 MG, UNK
     Route: 048
     Dates: start: 201510
  3. LEDIPASVIR [Suspect]
     Active Substance: LEDIPASVIR
     Indication: HEPATITIS C
     Dosage: 90 MG OF LEDIPASVIR,400 MG OF SOFOSBUVIR, FREQUENCY UNKNOWN
     Dates: start: 201510

REACTIONS (7)
  - Immunosuppression [Unknown]
  - Infection [Unknown]
  - Decreased appetite [Unknown]
  - Glomerular filtration rate decreased [Unknown]
  - Neoplasm malignant [Not Recovered/Not Resolved]
  - Anaemia [Unknown]
  - Asthenia [Unknown]
